FAERS Safety Report 8603449-6 (Version None)
Quarter: 2012Q3

REPORT INFORMATION
  Report Type: 
  Country: None (occurrence: None)
  Receive Date: 20120817
  Receipt Date: 20120808
  Transmission Date: 20120928
  Serious: No
  Sender: FDA-Public Use
  Company Number: US-ASTRAZENECA-2010SE06855

PATIENT
  Age: 73 Year
  Sex: Female
  Weight: 63 kg

DRUGS (2)
  1. METOPROLOL SUCCINATE [Suspect]
     Indication: BLOOD PRESSURE
     Route: 048
  2. COZAAR [Concomitant]
     Indication: BLOOD PRESSURE

REACTIONS (3)
  - DRUG INEFFECTIVE [None]
  - HYPERTENSION [None]
  - HYPERSENSITIVITY [None]
